FAERS Safety Report 19872853 (Version 3)
Quarter: 2023Q2

REPORT INFORMATION
  Report Type: Report from Study
  Country: IT (occurrence: IT)
  Receive Date: 20210922
  Receipt Date: 20230619
  Transmission Date: 20230721
  Serious: Yes (Hospitalization)
  Sender: FDA-Public Use
  Company Number: IT-VER-202100004

PATIENT
  Age: 76 Year
  Sex: Male

DRUGS (12)
  1. TRIPTORELIN [Suspect]
     Active Substance: TRIPTORELIN
     Indication: Salivary gland cancer
     Dosage: 3.75 MG, 1X/MONTH
     Route: 030
     Dates: start: 20200115, end: 20200311
  2. BICALUTAMIDE [Suspect]
     Active Substance: BICALUTAMIDE
     Indication: Salivary gland cancer
     Dosage: 50 MG, 1X/DAY
     Route: 048
     Dates: start: 20200108, end: 20200331
  3. RAMIPRIL [Concomitant]
     Active Substance: RAMIPRIL
     Indication: Hypertension
     Dosage: 2.5 MG, 1X/DAY
     Route: 048
     Dates: start: 20190620
  4. FUROSEMIDE [Concomitant]
     Active Substance: FUROSEMIDE
     Indication: Oedema
     Dosage: 75 MG, 1X/DAY
     Route: 048
     Dates: start: 20190620
  5. PREDNISONE [Concomitant]
     Active Substance: PREDNISONE
     Indication: Vertebral end plate inflammation
     Dosage: ??25 MG (25 MG,1 IN 1 D)
     Route: 048
     Dates: start: 20190617
  6. PREGABALIN [Concomitant]
     Active Substance: PREGABALIN
     Indication: Neuromuscular pain
     Dosage: 150 MG (75 MG,2 IN 1 D)
     Route: 048
     Dates: start: 20190617
  7. ACETAMINOPHEN [Concomitant]
     Active Substance: ACETAMINOPHEN
     Indication: Product used for unknown indication
     Route: 065
  8. ACETAMINOPHEN [Concomitant]
     Active Substance: ACETAMINOPHEN
     Indication: Product used for unknown indication
     Route: 065
  9. FENTANYL [Concomitant]
     Active Substance: FENTANYL
     Indication: Product used for unknown indication
     Dosage: 25 MCG/H 1 PATCH EVERY 72 H (1 IN 72 HR)
     Route: 065
  10. ALFUZOSIN HYDROCHLORIDE [Concomitant]
     Active Substance: ALFUZOSIN HYDROCHLORIDE
     Indication: Product used for unknown indication
     Dosage: 10 MG 1CP/DIE
     Route: 065
  11. FEBUXOSTAT [Concomitant]
     Active Substance: FEBUXOSTAT
     Indication: Product used for unknown indication
     Route: 065
  12. ATORVASTATIN [Concomitant]
     Active Substance: ATORVASTATIN
     Indication: Product used for unknown indication
     Dosage: 10 MG 1CP/DIE
     Route: 065

REACTIONS (1)
  - Spinal fracture [Recovered/Resolved]

NARRATIVE: CASE EVENT DATE: 20200331
